FAERS Safety Report 4305285-8 (Version None)
Quarter: 2004Q1

REPORT INFORMATION
  Report Type: 
  Country: None (occurrence: None)
  Receive Date: 20040226
  Receipt Date: 20030214
  Transmission Date: 20041129
  Serious: Yes (Hospitalization)
  Sender: FDA-Public Use
  Company Number: US-BRISTOL-MYERS SQUIBB COMPANY-12187613

PATIENT
  Age: 42 Year
  Sex: Female
  Weight: 73 kg

DRUGS (5)
  1. TAXOL [Suspect]
     Indication: BREAST CANCER
     Route: 042
     Dates: start: 20030214, end: 20030214
  2. DECADRON [Concomitant]
     Indication: PREMEDICATION
     Dosage: MIXED WITH KYTRIL 1 MG
     Route: 042
     Dates: start: 20030214, end: 20030214
  3. TAGAMET [Concomitant]
     Indication: PREMEDICATION
     Route: 042
     Dates: start: 20030214, end: 20030214
  4. BENADRYL [Concomitant]
     Indication: PREMEDICATION
     Route: 042
     Dates: start: 20030214, end: 20030214
  5. KYTRIL [Concomitant]
     Dosage: MIXED WITH DECADRON 20 MG
     Route: 042
     Dates: start: 20030214, end: 20030214

REACTIONS (1)
  - HYPERSENSITIVITY [None]
